FAERS Safety Report 4981543-9 (Version None)
Quarter: 2006Q2

REPORT INFORMATION
  Report Type: 
  Country: None (occurrence: None)
  Receive Date: 20060424
  Receipt Date: 20051123
  Transmission Date: 20061013
  Serious: Yes (Hospitalization)
  Sender: FDA-Public Use
  Company Number: US-MERCK-0511USA04368

PATIENT
  Age: 67 Year
  Sex: Male
  Weight: 80 kg

DRUGS (12)
  1. VIOXX [Suspect]
     Indication: ARTHRITIS
     Route: 048
     Dates: start: 20000613, end: 20041001
  2. TERAZOSIN HYDROCHLORIDE [Concomitant]
     Indication: BENIGN PROSTATIC HYPERPLASIA
     Route: 065
     Dates: start: 19990201
  3. NAPROXEN [Concomitant]
     Indication: PAIN
     Route: 065
     Dates: start: 19991201
  4. ACETAMINOPHEN [Concomitant]
     Indication: PAIN
     Route: 065
     Dates: start: 19991001
  5. CYCLOBENZAPRINE HYDROCHLORIDE [Concomitant]
     Indication: MUSCLE SPASMS
     Route: 065
     Dates: start: 19930101, end: 20030201
  6. CHONDROITIN SULFATE SODIUM AND GLUCOSAMINE SULFATE [Concomitant]
     Indication: ARTHRITIS
     Route: 065
  7. ALENDRONATE SODIUM [Concomitant]
     Route: 065
  8. RANITIDINE [Concomitant]
     Route: 065
  9. SILDENAFIL CITRATE [Concomitant]
     Route: 065
  10. ACYCLOVIR [Concomitant]
     Route: 065
  11. AMITRIPTYLINE HYDROCHLORIDE [Concomitant]
     Route: 065
  12. SIMVASTATIN [Concomitant]
     Route: 065

REACTIONS (9)
  - ARTERIOSCLEROSIS [None]
  - ARTHROPATHY [None]
  - CARDIAC MURMUR [None]
  - INSOMNIA [None]
  - MYOCARDIAL INFARCTION [None]
  - NEURALGIA [None]
  - NEUROPATHY [None]
  - PAIN [None]
  - SURGERY [None]
